FAERS Safety Report 5465553-3 (Version None)
Quarter: 2007Q3

REPORT INFORMATION
  Report Type: 
  Country: None (occurrence: None)
  Receive Date: 20070924
  Receipt Date: 20070910
  Transmission Date: 20080115
  Serious: Yes (Hospitalization)
  Sender: FDA-Public Use
  Company Number: GB-ROCHE-516292

PATIENT
  Age: 41 Year
  Sex: Male
  Weight: 80 kg

DRUGS (3)
  1. CAPECITABINE [Suspect]
     Indication: COLON CANCER
     Dosage: DOSAGE REDUCED TO 2 X 25% REDUCTION
     Route: 048
     Dates: end: 20070208
  2. CAPECITABINE [Suspect]
     Dosage: DOSAGE WAS REDUCED
     Route: 048
     Dates: start: 20060914
  3. BEVACIZUMAB [Suspect]
     Indication: COLON CANCER
     Route: 042
     Dates: start: 20060914, end: 20070816

REACTIONS (1)
  - PERITONITIS [None]
